FAERS Safety Report 23511905 (Version 1)
Quarter: 2024Q1

REPORT INFORMATION
  Report Type: Spontaneous
  Country: US (occurrence: None)
  Receive Date: 20240212
  Receipt Date: 20240212
  Transmission Date: 20240409
  Serious: No
  Sender: FDA-Public Use
  Company Number: US-MLMSERVICE-20230320-4176417-1

PATIENT
  Age: 59 Year
  Sex: Female

DRUGS (3)
  1. VANCOMYCIN [Concomitant]
     Active Substance: VANCOMYCIN
     Indication: Meningitis streptococcal
     Dosage: ()
     Route: 042
  2. AMPICILLIN [Suspect]
     Active Substance: AMPICILLIN
     Indication: Meningitis streptococcal
     Dosage: ()
     Route: 042
  3. CEFTAZIDIME [Suspect]
     Active Substance: CEFTAZIDIME
     Indication: Meningitis streptococcal
     Dosage: ()
     Route: 042

REACTIONS (1)
  - Rash macular [Unknown]
